FAERS Safety Report 6806419-3 (Version None)
Quarter: 2010Q2

REPORT INFORMATION
  Report Type: 
  Country: None (occurrence: None)
  Receive Date: 20100629
  Receipt Date: 20080222
  Transmission Date: 20101027
  Serious: No
  Sender: FDA-Public Use
  Company Number: US-PFIZER INC-2008014212

PATIENT
  Sex: Male
  Weight: 100 kg

DRUGS (8)
  1. VIAGRA [Suspect]
     Indication: ERECTILE DYSFUNCTION
     Route: 048
     Dates: start: 20071001, end: 20071101
  2. METOPROLOL [Concomitant]
  3. AMLODIPINE [Concomitant]
  4. ACTOS [Concomitant]
  5. METFORMIN HCL [Concomitant]
  6. GLIPIZIDE [Concomitant]
  7. LIPITOR [Concomitant]
  8. AVALIDE [Concomitant]

REACTIONS (1)
  - DRUG INEFFECTIVE [None]
